FAERS Safety Report 10197550 (Version 1)
Quarter: 2014Q2

REPORT INFORMATION
  Report Type: Spontaneous
  Country: US (occurrence: US)
  Receive Date: 20140527
  Receipt Date: 20140527
  Transmission Date: 20141212
  Serious: No
  Sender: FDA-Public Use
  Company Number: US-NOVEN-14US009416

PATIENT
  Sex: Female

DRUGS (2)
  1. MINIVELLE [Suspect]
     Indication: HOT FLUSH
     Dosage: 0.1 MG, 2X/WEEKLY
     Route: 062
     Dates: start: 201403, end: 201404
  2. PROGESTERONE [Concomitant]
     Indication: HOT FLUSH
     Dosage: UNK
     Dates: end: 201404

REACTIONS (5)
  - Application site warmth [Recovered/Resolved]
  - Application site pain [Not Recovered/Not Resolved]
  - Application site pruritus [Not Recovered/Not Resolved]
  - Application site irritation [Not Recovered/Not Resolved]
  - Application site erythema [Not Recovered/Not Resolved]
